FAERS Safety Report 5308011-9 (Version None)
Quarter: 2007Q2

REPORT INFORMATION
  Report Type: 
  Country: None (occurrence: None)
  Receive Date: 20070426
  Receipt Date: 20070417
  Transmission Date: 20071010
  Serious: Yes (Hospitalization, Other)
  Sender: FDA-Public Use
  Company Number: US-JNJFOC-20070107102

PATIENT
  Sex: Female
  Weight: 65.77 kg

DRUGS (24)
  1. REMICADE [Suspect]
     Route: 042
  2. REMICADE [Suspect]
     Route: 042
  3. REMICADE [Suspect]
     Route: 042
  4. REMICADE [Suspect]
     Route: 042
  5. REMICADE [Suspect]
     Route: 042
  6. REMICADE [Suspect]
     Indication: RHEUMATOID ARTHRITIS
     Route: 042
  7. TYLENOL [Concomitant]
     Indication: PREMEDICATION
  8. SOLU-MEDROL [Concomitant]
     Indication: PREMEDICATION
  9. WELLBUTRIN XL [Concomitant]
     Route: 048
  10. TOPAMAX [Concomitant]
     Route: 048
  11. IMURAN [Concomitant]
     Route: 048
  12. RELAFIN [Concomitant]
  13. NASONEX [Concomitant]
  14. MUCINEX [Concomitant]
     Route: 048
  15. VITAMIN CAP [Concomitant]
  16. FOLIC ACID [Concomitant]
     Route: 048
  17. NEXIUM [Concomitant]
     Route: 048
  18. CLARITIN [Concomitant]
     Indication: PREMEDICATION
  19. PHENERGAN HCL [Concomitant]
  20. RESTORIL [Concomitant]
     Indication: INSOMNIA
  21. PREMARIN [Concomitant]
  22. CYNTEST [Concomitant]
  23. NASACORT [Concomitant]
  24. VITAMIN B COMPLEX CAP [Concomitant]

REACTIONS (5)
  - AORTIC VALVE DISEASE [None]
  - CHEST PAIN [None]
  - COUGH [None]
  - DYSPNOEA [None]
  - NAUSEA [None]
